FAERS Safety Report 25996866 (Version 1)
Quarter: 2025Q4

REPORT INFORMATION
  Report Type: Spontaneous
  Country: US (occurrence: US)
  Receive Date: 20251104
  Receipt Date: 20251104
  Transmission Date: 20260118
  Serious: No
  Sender: AMGEN
  Company Number: US-AMGEN-USASP2025214309

PATIENT
  Age: 74 Year
  Sex: Female

DRUGS (1)
  1. PROLIA [Suspect]
     Active Substance: DENOSUMAB
     Indication: Osteoporosis postmenopausal
     Dosage: UNK
     Route: 065

REACTIONS (7)
  - Exostosis of jaw [Unknown]
  - Gingival pain [Unknown]
  - Toothache [Unknown]
  - Pain in jaw [Unknown]
  - Ear pain [Unknown]
  - Ear discomfort [Unknown]
  - Headache [Unknown]

NARRATIVE: CASE EVENT DATE: 20250101
